FAERS Safety Report 24453605 (Version 2)
Quarter: 2024Q4

REPORT INFORMATION
  Report Type: Report from Study
  Country: DE (occurrence: DE)
  Receive Date: 20241017
  Receipt Date: 20241018
  Transmission Date: 20250114
  Serious: No
  Sender: ROCHE
  Company Number: DE-ROCHE-3337257

PATIENT
  Age: 55 Year
  Sex: Female

DRUGS (2)
  1. RITUXIMAB [Suspect]
     Active Substance: RITUXIMAB
     Indication: Neuromyelitis optica spectrum disorder
     Route: 065
  2. CANNABIDIOL [Concomitant]
     Active Substance: CANNABIDIOL
     Dosage: DROP

REACTIONS (2)
  - Off label use [Unknown]
  - Seasonal affective disorder [Not Recovered/Not Resolved]

NARRATIVE: CASE EVENT DATE: 20211005
